FAERS Safety Report 9057570 (Version 1)
Quarter: 2013Q1

REPORT INFORMATION
  Report Type: Spontaneous
  Country: US (occurrence: US)
  Receive Date: 20130204
  Receipt Date: 20130204
  Transmission Date: 20140127
  Serious: Yes (Other)
  Sender: FDA-Public Use
  Company Number: US-PFIZER INC-2013044638

PATIENT
  Sex: Female

DRUGS (1)
  1. CHANTIX [Suspect]
     Indication: SMOKING CESSATION THERAPY
     Dosage: UNK

REACTIONS (7)
  - Chronic obstructive pulmonary disease [Unknown]
  - Abnormal dreams [Unknown]
  - Drug dose omission [Unknown]
  - General physical health deterioration [Unknown]
  - Agitation [Unknown]
  - Stress [Unknown]
  - Bronchitis [Unknown]
